FAERS Safety Report 7859251-6 (Version None)
Quarter: 2011Q4

REPORT INFORMATION
  Report Type: 
  Country: None (occurrence: None)
  Receive Date: 20111027
  Receipt Date: 20111027
  Transmission Date: 20120403
  Serious: Yes (Other)
  Sender: FDA-Public Use
  Company Number: None

PATIENT
  Age: 38 Year
  Sex: Female
  Weight: 82.553 kg

DRUGS (1)
  1. HYDROCHLOROTHIAZIDE [Suspect]
     Indication: HYPERTENSION
     Dosage: 1
     Route: 048
     Dates: start: 20110928, end: 20111026

REACTIONS (5)
  - FATIGUE [None]
  - INCREASED APPETITE [None]
  - WEIGHT INCREASED [None]
  - SOMNOLENCE [None]
  - PRURITUS [None]
